FAERS Safety Report 14597557 (Version 1)
Quarter: 2018Q1

REPORT INFORMATION
  Report Type: Spontaneous
  Country: US (occurrence: US)
  Receive Date: 20180305
  Receipt Date: 20180305
  Transmission Date: 20180509
  Serious: Yes (Other)
  Sender: FDA-Public Use
  Company Number: US-ROCHE-2077590

PATIENT
  Age: 49 Year
  Sex: Female

DRUGS (3)
  1. ESBRIET [Suspect]
     Active Substance: PIRFENIDONE
     Route: 048
     Dates: start: 20180216
  2. ESBRIET [Suspect]
     Active Substance: PIRFENIDONE
     Indication: IDIOPATHIC PULMONARY FIBROSIS
     Route: 048
     Dates: start: 20180119
  3. ESBRIET [Suspect]
     Active Substance: PIRFENIDONE
     Route: 048
     Dates: start: 20180209

REACTIONS (5)
  - Abdominal pain upper [Unknown]
  - Ocular icterus [Unknown]
  - Yellow skin [Unknown]
  - Nausea [Recovering/Resolving]
  - Chromaturia [Unknown]

NARRATIVE: CASE EVENT DATE: 20180119
